FAERS Safety Report 6912242-1 (Version None)
Quarter: 2010Q3

REPORT INFORMATION
  Report Type: 
  Country: None (occurrence: None)
  Receive Date: 20100806
  Receipt Date: 20080205
  Transmission Date: 20110219
  Serious: No
  Sender: FDA-Public Use
  Company Number: US-PFIZER INC-2008010566

PATIENT
  Sex: Male
  Weight: 68.04 kg

DRUGS (5)
  1. DETROL LA [Suspect]
     Indication: INCONTINENCE
     Dates: start: 20080117
  2. AVODART [Concomitant]
     Indication: PROSTATOMEGALY
  3. METFORMIN HCL [Concomitant]
     Indication: DIABETES MELLITUS
  4. NIASPAN [Concomitant]
     Indication: BLOOD CHOLESTEROL INCREASED
  5. ACETYLSALICYLIC ACID SRT [Concomitant]

REACTIONS (2)
  - DRUG INEFFECTIVE [None]
  - POLLAKIURIA [None]
